FAERS Safety Report 8457647-5 (Version None)
Quarter: 2012Q2

REPORT INFORMATION
  Report Type: 
  Country: None (occurrence: None)
  Receive Date: 20120622
  Receipt Date: 20120618
  Transmission Date: 20120825
  Serious: No
  Sender: FDA-Public Use
  Company Number: US-PFIZER INC-2012147757

PATIENT
  Sex: Female
  Weight: 64.853 kg

DRUGS (1)
  1. ESTRING [Suspect]
     Indication: VULVOVAGINAL DRYNESS
     Dosage: UNK
     Dates: start: 20120614

REACTIONS (3)
  - DECREASED APPETITE [None]
  - ABDOMINAL DISTENSION [None]
  - MUSCLE SPASMS [None]
